FAERS Safety Report 23777505 (Version 1)
Quarter: 2024Q2

REPORT INFORMATION
  Report Type: Spontaneous
  Country: US (occurrence: US)
  Receive Date: 20240424
  Receipt Date: 20240424
  Transmission Date: 20240716
  Serious: Yes (Other)
  Sender: FDA-Public Use
  Company Number: US-GLAXOSMITHKLINE-US2024AMR049578

PATIENT

DRUGS (1)
  1. OJJAARA [Suspect]
     Active Substance: MOMELOTINIB DIHYDROCHLORIDE MONOHYDRATE
     Indication: Product used for unknown indication
     Dosage: UNK

REACTIONS (8)
  - Haemoglobin decreased [Unknown]
  - Abdominal pain [Unknown]
  - Heart rate increased [Unknown]
  - Diarrhoea [Unknown]
  - Splenomegaly [Unknown]
  - Dizziness [Unknown]
  - Decreased appetite [Unknown]
  - Infection [Unknown]
